FAERS Safety Report 20663131 (Version 2)
Quarter: 2022Q2

REPORT INFORMATION
  Report Type: Spontaneous
  Country: CA (occurrence: CA)
  Receive Date: 20220401
  Receipt Date: 20220411
  Transmission Date: 20220721
  Serious: Yes (Disabling, Other)
  Sender: FDA-Public Use
  Company Number: CA-Accord-259253

PATIENT
  Age: 30 Year
  Sex: Male

DRUGS (3)
  1. ETOPOSIDE [Suspect]
     Active Substance: ETOPOSIDE
     Indication: Testicular cancer metastatic
     Dosage: 60% DOSE, DOSE REDUCTION IN ETOPOSIDE DURING CYCLES 1 TO 4
  2. CISPLATIN [Suspect]
     Active Substance: CISPLATIN
     Indication: Testicular cancer metastatic
     Dosage: FULL DOSE
  3. GRANULOCYTE COLONY STIMULATING FACT [Concomitant]
     Route: 058

REACTIONS (5)
  - Febrile neutropenia [Unknown]
  - Decreased appetite [Unknown]
  - Weight decreased [Unknown]
  - Peripheral sensorimotor neuropathy [Recovering/Resolving]
  - Loss of personal independence in daily activities [Unknown]
